FAERS Safety Report 8153802-2 (Version None)
Quarter: 2012Q1

REPORT INFORMATION
  Report Type: 
  Country: None (occurrence: None)
  Receive Date: 20120221
  Receipt Date: 20120213
  Transmission Date: 20120608
  Serious: Yes (Hospitalization, Other)
  Sender: FDA-Public Use
  Company Number: JP-GLAXOSMITHKLINE-B0782259A

PATIENT
  Age: 69 Year
  Sex: Female

DRUGS (1)
  1. ZOVIRAX [Suspect]
     Indication: HERPES ZOSTER
     Dosage: 4000MG PER DAY
     Route: 048

REACTIONS (7)
  - DYSLALIA [None]
  - ABASIA [None]
  - ENCEPHALOPATHY [None]
  - ALTERED STATE OF CONSCIOUSNESS [None]
  - TOXICITY TO VARIOUS AGENTS [None]
  - GAIT DISTURBANCE [None]
  - ATAXIA [None]
